FAERS Safety Report 6104777-9 (Version None)
Quarter: 2009Q1

REPORT INFORMATION
  Report Type: 
  Country: None (occurrence: None)
  Receive Date: 20090304
  Receipt Date: 20090304
  Transmission Date: 20090719
  Serious: Yes (Other)
  Sender: FDA-Public Use
  Company Number: None

PATIENT
  Sex: Female
  Weight: 80.7403 kg

DRUGS (7)
  1. CRESTOR [Suspect]
     Indication: MUSCLE SPASMS
     Dosage: IT WAS A SAMPLE PRODUCT
     Dates: start: 20080901, end: 20081001
  2. METOPROLOL TARTRATE [Concomitant]
  3. HYDROCHLOROTHIAZIDE [Concomitant]
  4. XYZAL [Concomitant]
  5. NASACORT AQ INHALER [Concomitant]
  6. ASPIRIN [Concomitant]
  7. XANAX [Concomitant]

REACTIONS (5)
  - COLD SWEAT [None]
  - DIZZINESS [None]
  - DYSSTASIA [None]
  - HYPERHIDROSIS [None]
  - MYALGIA [None]
